FAERS Safety Report 15853877 (Version 1)
Quarter: 2019Q1

REPORT INFORMATION
  Report Type: Spontaneous
  Country: US (occurrence: US)
  Receive Date: 20190121
  Receipt Date: 20190121
  Transmission Date: 20190417
  Serious: Yes (Hospitalization)
  Sender: FDA-Public Use
  Company Number: None

PATIENT
  Age: 60 Year
  Sex: Female

DRUGS (17)
  1. TRELEGY ELLIPTA [Concomitant]
     Active Substance: FLUTICASONE FUROATE\UMECLIDINIUM BROMIDE\VILANTEROL TRIFENATATE
  2. ZANTAC [Concomitant]
     Active Substance: RANITIDINE HYDROCHLORIDE
  3. EPIPEN [Concomitant]
     Active Substance: EPINEPHRINE
  4. VALIUM [Concomitant]
     Active Substance: DIAZEPAM
  5. EXEMESTANE. [Concomitant]
     Active Substance: EXEMESTANE
  6. PROAIR HFA [Concomitant]
     Active Substance: ALBUTEROL SULFATE
  7. VENLAFAXINE [Concomitant]
     Active Substance: VENLAFAXINE HYDROCHLORIDE
  8. AMLODIPINE [Concomitant]
     Active Substance: AMLODIPINE BESYLATE
  9. POTASSIUM [Concomitant]
     Active Substance: POTASSIUM
  10. PREDNISONE. [Concomitant]
     Active Substance: PREDNISONE
  11. ATORVASTATIN [Concomitant]
     Active Substance: ATORVASTATIN
  12. PANTOPRAZOLE [Concomitant]
     Active Substance: PANTOPRAZOLE
  13. COSENTYX [Suspect]
     Active Substance: SECUKINUMAB
     Indication: PSORIASIS
     Dosage: ?          OTHER FREQUENCY:EVERY 4 WEEKS;?
     Route: 058
     Dates: start: 20181129, end: 20190121
  14. COLESTIPOL [Concomitant]
     Active Substance: COLESTIPOL
  15. DIPROLENE [Concomitant]
     Active Substance: BETAMETHASONE DIPROPIONATE
  16. METOPROLOL. [Concomitant]
     Active Substance: METOPROLOL
  17. TRAZODONE [Concomitant]
     Active Substance: TRAZODONE HYDROCHLORIDE

REACTIONS (1)
  - Influenza [None]

NARRATIVE: CASE EVENT DATE: 20190111
